FAERS Safety Report 8571029-7 (Version None)
Quarter: 2012Q3

REPORT INFORMATION
  Report Type: 
  Country: None (occurrence: None)
  Receive Date: 20120806
  Receipt Date: 20120731
  Transmission Date: 20120928
  Serious: Yes (Hospitalization)
  Sender: FDA-Public Use
  Company Number: JP-GE HEALTHCARE MEDICAL DIAGNOSTICS-MSTR-NO-1206S-0043

PATIENT
  Sex: Male

DRUGS (4)
  1. LEUPROLIDE ACETATE [Concomitant]
  2. METASTRON [Suspect]
     Indication: METASTATIC PAIN
     Route: 042
     Dates: start: 20120423, end: 20120423
  3. WARFARIN SODIUM [Concomitant]
  4. CASODEX [Concomitant]

REACTIONS (1)
  - ANAEMIA [None]
